FAERS Safety Report 8916151 (Version 3)
Quarter: 2012Q4

REPORT INFORMATION
  Report Type: 
  Country: US (occurrence: US)
  Receive Date: 20121120
  Receipt Date: 20121228
  Transmission Date: 20130627
  Serious: Yes (Death, Life-Threatening, Hospitalization, Other)
  Sender: FDA-Public Use
  Company Number: US-CELGENEUS-163-21880-12081362

PATIENT
  Sex: Male

DRUGS (28)
  1. REVLIMID [Suspect]
     Indication: MYELODYSPLASTIC SYNDROME
     Dosage: 10 Milligram
     Route: 048
     Dates: start: 20120625, end: 20120629
  2. REVLIMID [Suspect]
     Indication: CLL
  3. ACYCLOVIR [Concomitant]
     Indication: DRUG USE FOR UNKNOWN INDICATION
     Dosage: 1200 Milligram
     Route: 048
     Dates: start: 20120620, end: 20120630
  4. COREG [Concomitant]
     Indication: DRUG USE FOR UNKNOWN INDICATION
     Dosage: 50 Milligram
     Route: 048
  5. LASIX [Concomitant]
     Indication: DRUG USE FOR UNKNOWN INDICATION
     Dosage: 40 Milligram
     Route: 048
  6. BACTRIM [Concomitant]
     Indication: PROPHYLAXIS
     Dosage: 400/80
     Route: 048
  7. PREDNISONE [Concomitant]
     Indication: DRUG USE FOR UNKNOWN INDICATION
     Route: 065
  8. HYDROMORPHONE [Concomitant]
     Indication: DRUG USE FOR UNKNOWN INDICATION
     Route: 041
  9. VICODIN [Concomitant]
     Indication: DRUG USE FOR UNKNOWN INDICATION
     Route: 065
  10. NITROGLYCERINE [Concomitant]
     Indication: DRUG USE FOR UNKNOWN INDICATION
     Route: 060
  11. LEVOFLOXACIN [Concomitant]
     Indication: DRUG USE FOR UNKNOWN INDICATION
     Route: 065
  12. COLCRYS [Concomitant]
     Indication: DRUG USE FOR UNKNOWN INDICATION
     Route: 065
  13. LOVENOX [Concomitant]
     Indication: DRUG USE FOR UNKNOWN INDICATION
     Route: 058
  14. NOVOLOG [Concomitant]
     Indication: DRUG USE FOR UNKNOWN INDICATION
     Route: 065
  15. PROCRIT [Concomitant]
     Indication: DRUG USE FOR UNKNOWN INDICATION
     Dosage: 60,000 units
     Route: 065
  16. BABY ASPIRIN [Concomitant]
     Indication: DRUG USE FOR UNKNOWN INDICATION
     Route: 065
  17. COZAAR [Concomitant]
     Indication: DRUG USE FOR UNKNOWN INDICATION
     Route: 065
  18. IRON GLUCONATE [Concomitant]
     Indication: DRUG USE FOR UNKNOWN INDICATION
     Route: 065
  19. FISH OIL [Concomitant]
     Indication: DRUG USE FOR UNKNOWN INDICATION
     Dosage: 1000 Milligram
     Route: 048
  20. LAXATIVE [Concomitant]
     Indication: DRUG USE FOR UNKNOWN INDICATION
     Route: 065
  21. STOOL SOFTENER [Concomitant]
     Indication: DRUG USE FOR UNKNOWN INDICATION
     Dosage: 100 Milligram
     Route: 065
  22. SYNTHROID [Concomitant]
     Indication: HYPOTHYROIDISM
     Dosage: 88 Microgram
     Route: 065
  23. ZOCOR [Concomitant]
     Indication: HYPERLIPIDEMIA
     Dosage: 20 Milligram
     Route: 048
  24. COUMADIN [Concomitant]
     Indication: DVT
     Route: 065
  25. ANTIBIOTICS [Concomitant]
     Indication: DRUG USE FOR UNKNOWN INDICATION
     Route: 065
  26. FERROUS SULFATE [Concomitant]
     Indication: DRUG USE FOR UNKNOWN INDICATION
     Dosage: 325 Milligram
     Route: 065
  27. MULTIVITAMINS [Concomitant]
     Indication: DRUG USE FOR UNKNOWN INDICATION
     Dosage: 1 Tablet
     Route: 048
  28. PSYLLIUM [Concomitant]
     Indication: CONSTIPATION
     Dosage: 1 Tablespoon
     Route: 048

REACTIONS (8)
  - Intestinal obstruction [Fatal]
  - Gout [Unknown]
  - Haemoglobin decreased [Not Recovered/Not Resolved]
  - Lymphocyte count decreased [Not Recovered/Not Resolved]
  - Deep vein thrombosis [Not Recovered/Not Resolved]
  - Pancytopenia [Not Recovered/Not Resolved]
  - Atrial flutter [Not Recovered/Not Resolved]
  - Renal failure [Not Recovered/Not Resolved]
